FAERS Safety Report 8272069-8 (Version None)
Quarter: 2012Q2

REPORT INFORMATION
  Report Type: 
  Country: None (occurrence: None)
  Receive Date: 20120410
  Receipt Date: 20120403
  Transmission Date: 20120825
  Serious: Yes (Hospitalization)
  Sender: FDA-Public Use
  Company Number: JP-CELGENEUS-087-21660-12040445

PATIENT
  Sex: Female

DRUGS (3)
  1. ALOXI [Concomitant]
     Dosage: .75 MILLIGRAM
     Route: 041
  2. DECADRON [Concomitant]
     Dosage: 6.6 MILLIGRAM
     Route: 041
  3. ABRAXANE [Suspect]
     Indication: BREAST CANCER
     Dosage: 220 MILLIGRAM/SQ. METER
     Route: 065
     Dates: start: 20110726

REACTIONS (1)
  - ATRIOVENTRICULAR BLOCK [None]
